FAERS Safety Report 8836933 (Version 3)
Quarter: 2015Q2

REPORT INFORMATION
  Report Type: Spontaneous
  Country: US (occurrence: None)
  Receive Date: 20121010
  Receipt Date: 20150506
  Transmission Date: 20150821
  Serious: Yes (Other)
  Sender: FDA-Public Use
  Company Number: ADR-2012-01824

PATIENT
  Age: 43 Year
  Sex: Female

DRUGS (1)
  1. BACLOFEN. [Suspect]
     Active Substance: BACLOFEN
     Dosage: UNK

REACTIONS (3)
  - Cerebrospinal fluid leakage [None]
  - Paraesthesia [None]
  - Post lumbar puncture syndrome [None]

NARRATIVE: CASE EVENT DATE: 20120101
